FAERS Safety Report 5029174-9 (Version None)
Quarter: 2006Q2

REPORT INFORMATION
  Report Type: 
  Country: None (occurrence: None)
  Receive Date: 20060613
  Receipt Date: 20060526
  Transmission Date: 20061013
  Serious: Yes (Other)
  Sender: FDA-Public Use
  Company Number: 110296ISR

PATIENT
  Age: 43 Year
  Sex: Male

DRUGS (5)
  1. ETOPOSIDE [Suspect]
     Indication: SEMINOMA
     Dosage: 190 MILLIGRAM, INTRAVENOUS (NOS)
     Route: 042
     Dates: start: 20060413, end: 20060417
  2. CISPLATIN [Suspect]
     Indication: SEMINOMA
     Dosage: 38 MILLIGRAM, INTRAVENOUS (NOS)
     Route: 042
     Dates: start: 20060413, end: 20060417
  3. BLEOMYCIN [Suspect]
     Indication: SEMINOMA
     Dosage: 30 MILLIGRAM, INTRAVENOUS (NOS)
     Route: 042
     Dates: start: 20060414
  4. ALLOPURINOL [Concomitant]
  5. NEXIUM [Concomitant]

REACTIONS (2)
  - MYOCARDIAL ISCHAEMIA [None]
  - PRINZMETAL ANGINA [None]
